FAERS Safety Report 25257926 (Version 1)
Quarter: 2025Q2

REPORT INFORMATION
  Report Type: Report from Study
  Country: US (occurrence: US)
  Receive Date: 20250501
  Receipt Date: 20250501
  Transmission Date: 20250717
  Serious: Yes (Hospitalization, Other)
  Sender: ABBVIE
  Company Number: US-ABBVIE-5942448

PATIENT
  Age: 36 Year
  Sex: Female

DRUGS (2)
  1. HUMIRA [Suspect]
     Active Substance: ADALIMUMAB
     Indication: Hidradenitis
     Route: 058
     Dates: start: 20230413
  2. HUMIRA [Suspect]
     Active Substance: ADALIMUMAB
     Route: 058

REACTIONS (12)
  - Abscess neck [Recovered/Resolved]
  - Acne [Recovering/Resolving]
  - Rash papular [Not Recovered/Not Resolved]
  - Endometrial hypoplasia [Not Recovered/Not Resolved]
  - Uterine dilation and curettage [Unknown]
  - Skin lesion [Recovering/Resolving]
  - Groin abscess [Recovering/Resolving]
  - Erythema [Recovering/Resolving]
  - Yellow skin [Recovering/Resolving]
  - Pruritus [Recovering/Resolving]
  - Cellulitis [Unknown]
  - Abscess limb [Recovering/Resolving]

NARRATIVE: CASE EVENT DATE: 20240101
